FAERS Safety Report 8561228-2 (Version None)
Quarter: 2012Q3

REPORT INFORMATION
  Report Type: 
  Country: None (occurrence: None)
  Receive Date: 20120802
  Receipt Date: 20111208
  Transmission Date: 20120928
  Serious: Yes (Death)
  Sender: FDA-Public Use
  Company Number: US-GENZYME-LEUK-1000085

PATIENT
  Age: 67 Year
  Sex: Male

DRUGS (24)
  1. CPG 7909 [Suspect]
     Dosage: UNK(DAY 1 AND DAY 15)
     Route: 058
     Dates: start: 20090704, end: 20090704
  2. OTHER CYTOKINES AND IMMUNOMODULATING AGENTS [Suspect]
     Dosage: UNK(DAY 1 AND DAY15)
     Route: 058
     Dates: start: 20090623, end: 20090623
  3. VACCINES [Suspect]
     Dosage: UNK(DAY 1 AND DAY 15)
     Route: 058
     Dates: start: 20090704, end: 20090704
  4. VACCINES [Suspect]
     Dosage: UNK(DAY 1 AND DAY 15)
     Route: 058
     Dates: start: 20090723, end: 20090723
  5. INVESTIGATIONAL DRUG [Suspect]
     Dosage: UNK(DAY 1 AND DAY 15)
     Route: 058
     Dates: start: 20090623, end: 20090623
  6. INVESTIGATIONAL DRUG [Suspect]
     Dosage: UNK(DAY 1 AND DAY 15)
     Route: 058
     Dates: start: 20090723, end: 20090723
  7. INVESTIGATIONAL DRUG [Suspect]
     Dosage: UNK(DAY 1 AND DAY 15)
     Route: 058
     Dates: start: 20090723, end: 20090723
  8. VACCINES [Suspect]
     Indication: MALIGNANT MELANOMA
     Dosage: UNK(DAY 1 AND DAY 15)
     Route: 058
     Dates: start: 20090611, end: 20090611
  9. LEUKINE [Suspect]
     Dosage: UNK(DAY 1 AND DAY 15)
     Route: 058
     Dates: start: 20090723, end: 20090723
  10. INVESTIGATIONAL DRUG [Suspect]
     Indication: MALIGNANT MELANOMA
     Dosage: UNK (DAY 1 AND DAY 15)
     Route: 058
     Dates: start: 20090611, end: 20090611
  11. INVESTIGATIONAL DRUG [Suspect]
     Dosage: UNK()DAY 1 AND DAY 15
     Route: 058
     Dates: start: 20090623, end: 20090623
  12. CPG 7909 [Suspect]
     Indication: MALIGNANT MELANOMA
     Dosage: UNK(DAY 1 AND DAY 15)
     Route: 058
     Dates: start: 20090611, end: 20090611
  13. LEUKINE [Suspect]
     Dosage: UNK(DAY 1 AND DAY 15)
     Route: 058
     Dates: start: 20090623, end: 20090623
  14. INVESTIGATIONAL DRUG [Suspect]
     Dosage: UNK(DAY 1 AND DAY 15)
     Route: 058
     Dates: start: 20090704, end: 20090704
  15. OTHER CYTOKINES AND IMMUNOMODULATING AGENTS [Suspect]
     Indication: MALIGNANT MELANOMA
     Dosage: UNK(DAY 1 AND DAY 15)
     Route: 058
     Dates: start: 20090611, end: 20090611
  16. OTHER CYTOKINES AND IMMUNOMODULATING AGENTS [Suspect]
     Dosage: UNK(DAY 1 AND DAY 15)
     Route: 058
     Dates: start: 20090704, end: 20090704
  17. OTHER CYTOKINES AND IMMUNOMODULATING AGENTS [Suspect]
     Dosage: UNK(DAY 1 AND DAY 15)
     Route: 058
     Dates: start: 20090723, end: 20090723
  18. VACCINES [Suspect]
     Dosage: UNK(DAY 1 AND DAY 15)
     Route: 058
     Dates: start: 20090623, end: 20090623
  19. LEUKINE [Suspect]
     Indication: MALIGNANT MELANOMA
     Dosage: UNK(DAY 1 AND DAY 15)
     Route: 058
     Dates: start: 20090611, end: 20090611
  20. CPG 7909 [Suspect]
     Dosage: UNK(DAY 1 AND DAY 15)
     Route: 058
     Dates: start: 20090623, end: 20090623
  21. CPG 7909 [Suspect]
     Dosage: UNK(DAY 1 AND DAY 15)
     Route: 058
     Dates: start: 20090723, end: 20090723
  22. INVESTIGATIONAL DRUG [Suspect]
     Dosage: UNK(DAY 1 AND DAY 15)
     Route: 058
     Dates: start: 20090611, end: 20090611
  23. INVESTIGATIONAL DRUG [Suspect]
     Dosage: UNK(DAY 1 AND DAY 15)
     Route: 058
     Dates: start: 20090704, end: 20090704
  24. LEUKINE [Suspect]
     Dosage: UNK(DAY 1 AND DAY 15)
     Route: 058
     Dates: start: 20090704, end: 20090704

REACTIONS (1)
  - NEOPLASM MALIGNANT [None]
